FAERS Safety Report 7006608-1 (Version None)
Quarter: 2010Q3

REPORT INFORMATION
  Report Type: 
  Country: None (occurrence: None)
  Receive Date: 20100921
  Receipt Date: 20100921
  Transmission Date: 20110219
  Serious: Yes (Hospitalization)
  Sender: FDA-Public Use
  Company Number: None

PATIENT
  Age: 70 Year
  Sex: Female

DRUGS (10)
  1. LETAIRIS [Suspect]
     Dosage: 5MG DAILY ORALLY
     Route: 048
     Dates: start: 20100405, end: 20100422
  2. FUROSEMIDE [Concomitant]
  3. WARFARIN [Concomitant]
  4. ATROVENT HFA [Concomitant]
  5. ADVAIR DISKUS 100/50 [Concomitant]
  6. OMEPRAZOLE [Concomitant]
  7. PRAVASTATIN [Concomitant]
  8. FLECAINIDE ACETATE [Concomitant]
  9. KLOR-CON [Concomitant]
  10. XALATAN [Concomitant]

REACTIONS (1)
  - CARDIAC FAILURE CONGESTIVE [None]
